FAERS Safety Report 17016593 (Version 1)
Quarter: 2019Q4

REPORT INFORMATION
  Report Type: Spontaneous
  Country: US (occurrence: US)
  Receive Date: 20191111
  Receipt Date: 20191111
  Transmission Date: 20200122
  Serious: No
  Sender: FDA-Public Use
  Company Number: US-PFIZER INC-2014345936

PATIENT
  Age: 58 Year
  Sex: Female
  Weight: 131.7 kg

DRUGS (4)
  1. PENTOXIFYLLINE. [Suspect]
     Active Substance: PENTOXIFYLLINE
     Indication: ANTIINFLAMMATORY THERAPY
  2. LYRICA [Suspect]
     Active Substance: PREGABALIN
     Indication: NEURALGIA
     Dosage: UNK
  3. TOPIRAMATE. [Suspect]
     Active Substance: TOPIRAMATE
     Indication: LYMPHOEDEMA
     Dosage: 50 MG, 2X/DAY (25 MG, TWO PILLS IN THE MORNING AND TWO PILLS IN THE EVENING)
  4. PENTOXIFYLLINE. [Suspect]
     Active Substance: PENTOXIFYLLINE
     Indication: LYMPHOEDEMA
     Dosage: 400 MG, 2X/DAY (400 MG, ONE IN THE MORNING AND ONE IN THE EVENING)

REACTIONS (9)
  - Taste disorder [Unknown]
  - Toothache [Unknown]
  - Malaise [Unknown]
  - Dry mouth [Unknown]
  - Hyperaesthesia teeth [Unknown]
  - Nausea [Unknown]
  - Dizziness [Unknown]
  - Abdominal pain upper [Unknown]
  - Gingival pain [Unknown]
